FAERS Safety Report 6525575-8 (Version None)
Quarter: 2009Q4

REPORT INFORMATION
  Report Type: 
  Country: None (occurrence: None)
  Receive Date: 20091214
  Receipt Date: 20090122
  Transmission Date: 20100525
  Serious: Yes (Other)
  Sender: FDA-Public Use
  Company Number: 610008

PATIENT
  Age: 50 Year
  Sex: Female

DRUGS (1)
  1. PEGASYS [Suspect]
     Indication: HEPATITIS C
     Dosage: 180 UG
     Dates: start: 20080131, end: 20081204

REACTIONS (2)
  - LIVER FUNCTION TEST ABNORMAL [None]
  - PSYCHOTIC DISORDER [None]
